FAERS Safety Report 6491130-1 (Version None)
Quarter: 2009Q4

REPORT INFORMATION
  Report Type: 
  Country: None (occurrence: None)
  Receive Date: 20091207
  Receipt Date: 20091123
  Transmission Date: 20100525
  Serious: Yes (Hospitalization)
  Sender: FDA-Public Use
  Company Number: 2009AL007508

PATIENT
  Age: 82 Year
  Sex: Female

DRUGS (11)
  1. RAMIPRIL [Suspect]
     Indication: HYPERTENSION
     Dosage: 5 MG; PO
     Route: 048
  2. XIPAMIDE [Concomitant]
  3. ASPIRIN [Concomitant]
  4. BISOPROLOL [Concomitant]
  5. MOXONIDINE [Concomitant]
  6. TORSEMIDE [Concomitant]
  7. VALORON [Concomitant]
  8. ALLOPURINOL [Concomitant]
  9. METFORMIN HCL [Concomitant]
  10. NOVALGIN [Concomitant]
  11. PANTOPRAZOLE [Concomitant]

REACTIONS (9)
  - ACUTE PRERENAL FAILURE [None]
  - ALKALOSIS [None]
  - CONSTIPATION [None]
  - DEHYDRATION [None]
  - DRUG INTERACTION [None]
  - DRY SKIN [None]
  - HYPERKALAEMIA [None]
  - HYPONATRAEMIA [None]
  - MUCOUS MEMBRANE DISORDER [None]
